FAERS Safety Report 20225444 (Version 1)
Quarter: 2021Q4

REPORT INFORMATION
  Report Type: Spontaneous
  Country: US (occurrence: US)
  Receive Date: 20211224
  Receipt Date: 20211224
  Transmission Date: 20220303
  Serious: Yes (Death, Hospitalization, Other)
  Sender: FDA-Public Use
  Company Number: US-ORGANON-O2112USA002025

PATIENT
  Age: 69 Year
  Sex: Female

DRUGS (10)
  1. REMERON [Suspect]
     Active Substance: MIRTAZAPINE
     Dosage: UNK
     Route: 048
  2. METFORMIN [Suspect]
     Active Substance: METFORMIN HYDROCHLORIDE
     Dosage: UNK
     Route: 048
  3. BUPROPION [Suspect]
     Active Substance: BUPROPION
     Dosage: UNK
     Route: 048
  4. BUSPIRONE [Suspect]
     Active Substance: BUSPIRONE HYDROCHLORIDE
     Dosage: UNK
     Route: 048
  5. LORAZEPAM [Suspect]
     Active Substance: LORAZEPAM
     Dosage: UNK
     Route: 048
  6. CLONAZEPAM [Suspect]
     Active Substance: CLONAZEPAM
     Dosage: UNK
     Route: 048
  7. FLUOXETINE [Suspect]
     Active Substance: FLUOXETINE HYDROCHLORIDE
     Dosage: UNK
     Route: 048
  8. OLANZAPINE [Suspect]
     Active Substance: OLANZAPINE
     Dosage: UNK
     Route: 048
  9. ALPRAZOLAM [Suspect]
     Active Substance: ALPRAZOLAM
     Dosage: UNK
     Route: 048
  10. TRAMADOL [Suspect]
     Active Substance: TRAMADOL
     Dosage: UNK
     Route: 048

REACTIONS (1)
  - Suspected suicide [Fatal]
